FAERS Safety Report 20643038 (Version 2)
Quarter: 2022Q1

REPORT INFORMATION
  Report Type: Report from Study
  Country: US (occurrence: US)
  Receive Date: 20220328
  Receipt Date: 20220329
  Transmission Date: 20220423
  Serious: Yes (Death)
  Sender: FDA-Public Use
  Company Number: US-ABBVIE-21K-163-3894370-00

PATIENT
  Age: 44 Year
  Sex: Female

DRUGS (8)
  1. VENCLEXTA [Suspect]
     Active Substance: VENETOCLAX
     Indication: Neoplasm malignant
     Dosage: 1 TABLET BY MOUTH DAILY ON DAYS 1-7 EACH CYCLE; WITH 20MG TOTAL DAILY DOSE 70MG
     Route: 048
  2. VENCLEXTA [Suspect]
     Active Substance: VENETOCLAX
     Indication: Acute leukaemia
     Dosage: 2 TABLET BY MOUTH DAILY ON DAYS 1-7 EACH CYCLE; WITH 50MG TOTAL DAILY DOSE 70MG
     Route: 048
  3. VENCLEXTA [Suspect]
     Active Substance: VENETOCLAX
     Indication: Acute myeloid leukaemia
     Route: 048
  4. VENCLEXTA [Suspect]
     Active Substance: VENETOCLAX
     Route: 048
  5. VENCLEXTA [Suspect]
     Active Substance: VENETOCLAX
     Dosage: TWO 10MG TABLETS ONE 50MG DAILY ON DAYS 1-7 OF EACH CYCLE FOR A TOTAL DAILY DOSE OF 70MG
     Route: 048
  6. VENCLEXTA [Suspect]
     Active Substance: VENETOCLAX
     Dosage: 2 TABLETS DAILY ON DAYS 1-7 OF EACH CYCLE TAKE 50MG FOR A TOTAL DAILY DOSE OF 70MG
     Route: 048
  7. VENCLEXTA [Suspect]
     Active Substance: VENETOCLAX
     Route: 048
     Dates: start: 20210629, end: 20220304
  8. VENCLEXTA [Suspect]
     Active Substance: VENETOCLAX
     Dosage: FOR 14 DAYS
     Route: 048

REACTIONS (2)
  - Death [Fatal]
  - Off label use [Unknown]

NARRATIVE: CASE EVENT DATE: 20220305
